FAERS Safety Report 11916333 (Version 1)
Quarter: 2016Q1

REPORT INFORMATION
  Report Type: Spontaneous
  Country: BR (occurrence: BR)
  Receive Date: 20160114
  Receipt Date: 20160114
  Transmission Date: 20160526
  Serious: Yes (Other)
  Sender: FDA-Public Use
  Company Number: BR-PFIZER INC-2016005061

PATIENT
  Age: 29 Year
  Sex: Male
  Weight: 106.9 kg

DRUGS (2)
  1. FARMORUBICINA [Suspect]
     Active Substance: EPIRUBICIN HYDROCHLORIDE
     Dosage: 113 MG, UNK
     Route: 042
     Dates: start: 20151204
  2. HOLOXANE [Suspect]
     Active Substance: IFOSFAMIDE
     Dosage: 4014 MG, UNK
     Route: 042
     Dates: start: 20151204

REACTIONS (2)
  - Tremor [Recovered/Resolved]
  - Pyrexia [Recovered/Resolved]

NARRATIVE: CASE EVENT DATE: 20151204
